FAERS Safety Report 9743316 (Version 1)
Quarter: 2013Q4

REPORT INFORMATION
  Report Type: Report from Study
  Country: FR (occurrence: FR)
  Receive Date: 20131210
  Receipt Date: 20131210
  Transmission Date: 20140711
  Serious: Yes (Death)
  Sender: FDA-Public Use
  Company Number: FR-ONYX-2013-1957

PATIENT
  Age: 70 Year
  Sex: Male

DRUGS (4)
  1. CARFILZOMIB [Suspect]
     Indication: PLASMA CELL MYELOMA
     Route: 042
  2. CARFILZOMIB [Suspect]
     Route: 042
     Dates: start: 20130107, end: 20130108
  3. ALKERAN [Concomitant]
     Indication: PLASMA CELL MYELOMA
     Route: 048
  4. ALKERAN [Concomitant]
     Route: 048
     Dates: start: 20130107, end: 20130110

REACTIONS (1)
  - Ureteric cancer metastatic [Fatal]
